FAERS Safety Report 6143650-7 (Version None)
Quarter: 2009Q2

REPORT INFORMATION
  Report Type: 
  Country: None (occurrence: None)
  Receive Date: 20090403
  Receipt Date: 20090320
  Transmission Date: 20091009
  Serious: Yes (Hospitalization)
  Sender: FDA-Public Use
  Company Number: US-ROCHE-623814

PATIENT
  Sex: Female
  Weight: 96 kg

DRUGS (13)
  1. MYCOPHENOLATE MOFETIL [Suspect]
     Indication: LUPUS NEPHRITIS
     Dosage: FORM: PILLS
     Route: 048
     Dates: start: 20090208
  2. MYCOPHENOLATE MOFETIL [Suspect]
     Dosage: DOSE REDUCED
     Route: 048
     Dates: start: 20090305
  3. MYCOPHENOLATE MOFETIL [Suspect]
     Dosage: DOSE REDUCED
     Route: 048
     Dates: start: 20090319
  4. BLINDED OCRELIZUMAB [Suspect]
     Indication: LUPUS NEPHRITIS
     Dosage: LAST DOSE PRIOR TO SAE WAS ON 19 FEB 2009
     Route: 042
     Dates: start: 20090204
  5. PREDNISONE [Suspect]
     Indication: LUPUS NEPHRITIS
     Dosage: FORM: PILLS
     Route: 048
     Dates: start: 20090122
  6. PREDNISONE [Suspect]
     Dosage: LAST DOSE PRIOR TO SAE WAS ON 10 MAR 2009
     Route: 048
     Dates: start: 20090305
  7. HYZAAR [Concomitant]
     Dates: start: 20080617
  8. CITALOPRAM [Concomitant]
     Dates: start: 20081002
  9. LISINOPRIL [Concomitant]
     Dates: start: 20040101
  10. PLAQUENIL [Concomitant]
     Dates: start: 19990101
  11. METOCLOPRAMIDE [Concomitant]
     Dosage: DRUG: METOCLOPRAMIDE (PRN)
     Dates: start: 20090114
  12. FUROSEMIDE [Concomitant]
     Dates: start: 20090226
  13. FAMOTIDINE [Concomitant]
     Dates: start: 20090204

REACTIONS (1)
  - RECTAL ULCER [None]
